FAERS Safety Report 6947985-7 (Version None)
Quarter: 2010Q3

REPORT INFORMATION
  Report Type: 
  Country: None (occurrence: None)
  Receive Date: 20100825
  Receipt Date: 20100810
  Transmission Date: 20110219
  Serious: Yes (Other)
  Sender: FDA-Public Use
  Company Number: ACO-01696_2010

PATIENT
  Sex: Male
  Weight: 87.5442 kg

DRUGS (1)
  1. AMPYRA [Suspect]
     Indication: GAIT DISTURBANCE
     Dosage: 10 MG BID ORAL
     Route: 048
     Dates: start: 20100731

REACTIONS (8)
  - FATIGUE [None]
  - FORMICATION [None]
  - GINGIVAL BLEEDING [None]
  - HYPERTENSION [None]
  - MULTIPLE SCLEROSIS RELAPSE [None]
  - MUSCLE SPASMS [None]
  - PARAESTHESIA [None]
  - VIRAL INFECTION [None]
